FAERS Safety Report 24358219 (Version 1)
Quarter: 2024Q3

REPORT INFORMATION
  Report Type: Spontaneous
  Country: BE (occurrence: BE)
  Receive Date: 20240924
  Receipt Date: 20240924
  Transmission Date: 20241017
  Serious: Yes (Hospitalization, Other)
  Sender: ELI LILLY AND CO
  Company Number: BE-ELI_LILLY_AND_COMPANY-BE202409008490

PATIENT
  Age: 60 Year

DRUGS (1)
  1. VERZENIO [Suspect]
     Active Substance: ABEMACICLIB
     Indication: Product used for unknown indication
     Dosage: UNK UNK, UNKNOWN
     Route: 065
     Dates: start: 20240826

REACTIONS (16)
  - Hypovolaemic shock [Unknown]
  - Device related sepsis [Unknown]
  - Respiratory distress [Unknown]
  - Catheter site pain [Unknown]
  - Atelectasis [Unknown]
  - Blood lactic acid increased [Unknown]
  - Hypotension [Unknown]
  - Sepsis [Unknown]
  - Monoclonal gammopathy [Unknown]
  - Malaise [Unknown]
  - Febrile neutropenia [Unknown]
  - Bacterial infection [Unknown]
  - Abdominal pain [Unknown]
  - Vomiting [Unknown]
  - Nausea [Unknown]
  - Diarrhoea [Unknown]

NARRATIVE: CASE EVENT DATE: 20240903
